FAERS Safety Report 24213215 (Version 2)
Quarter: 2024Q3

REPORT INFORMATION
  Report Type: Spontaneous
  Country: US (occurrence: US)
  Receive Date: 20240815
  Receipt Date: 20240826
  Transmission Date: 20241016
  Serious: No
  Sender: GLAXOSMITHKLINE
  Company Number: US-GSKCCFUS-Case-02070276_AE-114539

PATIENT
  Sex: Female

DRUGS (1)
  1. JEMPERLI [Suspect]
     Active Substance: DOSTARLIMAB-GXLY
     Indication: Product used for unknown indication
     Dosage: UNK
     Route: 043
     Dates: start: 20240215

REACTIONS (5)
  - Dyspnoea [Unknown]
  - Wheezing [Unknown]
  - Myalgia [Unknown]
  - Fibromyalgia [Unknown]
  - Ill-defined disorder [Unknown]
